FAERS Safety Report 8789395 (Version 1)
Quarter: 2012Q4

REPORT INFORMATION
  Report Type: 
  Country: US (occurrence: None)
  Receive Date: 20120910
  Receipt Date: 20120910
  Transmission Date: 20130627
  Serious: Yes (Hospitalization)
  Sender: FDA-Public Use
  Company Number: None

PATIENT
  Sex: Female
  Weight: 88 kg

DRUGS (4)
  1. CISPLATIN [Suspect]
  2. ETOPOSIDE [Suspect]
  3. AMLODOPINE [Concomitant]
  4. METOPROLOL [Concomitant]

REACTIONS (1)
  - Pulmonary embolism [None]
